FAERS Safety Report 5058345-0 (Version None)
Quarter: 2006Q2

REPORT INFORMATION
  Report Type: 
  Country: None (occurrence: None)
  Receive Date: 20060626
  Receipt Date: 20060511
  Transmission Date: 20061013
  Serious: Yes (Hospitalization)
  Sender: FDA-Public Use
  Company Number: US-JNJFOC-20060403527

PATIENT
  Age: 34 Year
  Sex: Female
  Weight: 87.0906 kg

DRUGS (1)
  1. ULTRAM SR [Suspect]
     Indication: DYSMENORRHOEA
     Dosage: 200 MG, 1 IN 1 DAY, ORAL
     Route: 048
     Dates: start: 20060403, end: 20060404

REACTIONS (6)
  - DIZZINESS [None]
  - FATIGUE [None]
  - HEADACHE [None]
  - NAUSEA [None]
  - SYNCOPE [None]
  - VOMITING [None]
